FAERS Safety Report 10146342 (Version 1)
Quarter: 2014Q2

REPORT INFORMATION
  Report Type: Spontaneous
  Country: US (occurrence: None)
  Receive Date: 20140430
  Receipt Date: 20140430
  Transmission Date: 20141212
  Serious: Yes (Hospitalization)
  Sender: FDA-Public Use
  Company Number: None

PATIENT
  Age: 82 Year
  Sex: Male

DRUGS (17)
  1. SODIUMCIRTATO+CITRIC ACID (BICITRA) [Suspect]
     Indication: METABOLIC ALKALOSIS
     Dosage: 500MG/5ML 30 CC, 3 TIMES PER DAY, PO
     Route: 048
     Dates: end: 20141111
  2. ALLOPURINOL [Concomitant]
  3. AMLODIPINE [Concomitant]
  4. ASA [Concomitant]
  5. ATORVASTATIN [Concomitant]
  6. CALCITRIOL [Concomitant]
  7. PANCREALIPASE [Concomitant]
  8. FOLIC ACID [Concomitant]
  9. SODIUM POLYSTYRENE SULFONATE [Concomitant]
  10. INSULIN GLARGINE [Concomitant]
  11. FUROSEMIDE [Concomitant]
  12. LEVOTHYROXINE [Concomitant]
  13. ESOMEPRAZOLE [Concomitant]
  14. CITRIC AID SODIUM CITRATE [Concomitant]
  15. METOPROLOL [Concomitant]
  16. CALCIUM ACETATE [Concomitant]
  17. REPAGLINIDE [Concomitant]

REACTIONS (1)
  - Hyperkalaemia [None]
